FAERS Safety Report 9420157 (Version 2)
Quarter: 2013Q3

REPORT INFORMATION
  Report Type: Spontaneous
  Country: US (occurrence: US)
  Receive Date: 20130725
  Receipt Date: 20130731
  Transmission Date: 20140515
  Serious: Yes (Other)
  Sender: FDA-Public Use
  Company Number: US-TEVA-420303USA

PATIENT
  Age: 52 Year
  Sex: Male

DRUGS (2)
  1. COPAXONE [Suspect]
     Indication: MULTIPLE SCLEROSIS
     Dates: start: 20070727
  2. AMPYRA [Suspect]

REACTIONS (2)
  - Multiple sclerosis relapse [Unknown]
  - Abasia [Unknown]
